FAERS Safety Report 9970940 (Version 1)
Quarter: 2014Q1

REPORT INFORMATION
  Report Type: Spontaneous
  Country: US (occurrence: None)
  Receive Date: 20140127
  Receipt Date: 20140127
  Transmission Date: 20141002
  Serious: Yes (Other)
  Sender: FDA-Public Use
  Company Number: 1287081

PATIENT
  Age: 40 Year
  Sex: Male
  Weight: 95.71 kg

DRUGS (6)
  1. RITUXAN [Suspect]
     Indication: SYSTEMIC LUPUS ERYTHEMATOSUS
     Dosage: Q2 WEEKSX2 (800 MG), INTRAVENOUS (NOT OTHERWISE SPECIFIED)
     Route: 042
     Dates: start: 201307, end: 201308
  2. CELLCEPT (MYCOPHENOLATE MOFETIL) [Suspect]
     Indication: SYSTEMIC LUPUS ERYTHEMATOSUS
     Route: 048
     Dates: start: 20130319, end: 20130809
  3. DEMADEX (TORASEMIDE) [Concomitant]
  4. MINOXIDAL (MINOXIDIL) [Concomitant]
  5. RENVELA (SEVELAMER CARBONATE) [Concomitant]
  6. TRAZODONE (TRAZODONE HYDROCHLORIDE) [Concomitant]

REACTIONS (1)
  - Leukopenia [None]
